FAERS Safety Report 5680665-7 (Version None)
Quarter: 2008Q1

REPORT INFORMATION
  Report Type: 
  Country: None (occurrence: None)
  Receive Date: 20080326
  Receipt Date: 20070713
  Transmission Date: 20080703
  Serious: No
  Sender: FDA-Public Use
  Company Number: US-BAUSCH-2007BL002372

PATIENT
  Age: 72 Year
  Sex: Female

DRUGS (4)
  1. LOTEMAX [Suspect]
     Indication: EYE ALLERGY
     Route: 047
     Dates: start: 20070710, end: 20070710
  2. LEVOXYL [Concomitant]
  3. PRAVASTATIN SODIUM [Concomitant]
  4. COZAAR [Concomitant]

REACTIONS (3)
  - ASTHENOPIA [None]
  - OCULAR DISCOMFORT [None]
  - VISION BLURRED [None]
